FAERS Safety Report 14933575 (Version 4)
Quarter: 2018Q3

REPORT INFORMATION
  Report Type: Spontaneous
  Country: CN (occurrence: CN)
  Receive Date: 20180524
  Receipt Date: 20180725
  Transmission Date: 20181010
  Serious: No
  Sender: FDA-Public Use
  Company Number: CN-FERRINGPH-2018FE02396

PATIENT

DRUGS (1)
  1. PROPESS [Suspect]
     Active Substance: DINOPROSTONE
     Indication: INDUCTION OF CERVIX RIPENING
     Dosage: 10 MG, ONCE/SINGLE
     Route: 067
     Dates: start: 20180506, end: 20180506

REACTIONS (2)
  - Meconium in amniotic fluid [Recovered/Resolved]
  - Precipitate labour [Recovered/Resolved]

NARRATIVE: CASE EVENT DATE: 20180506
